FAERS Safety Report 25489757 (Version 1)
Quarter: 2025Q2

REPORT INFORMATION
  Report Type: Spontaneous
  Country: GB (occurrence: GB)
  Receive Date: 20250627
  Receipt Date: 20250627
  Transmission Date: 20250716
  Serious: Yes (Other)
  Sender: VERTEX
  Company Number: None

PATIENT
  Age: 15 Year
  Sex: Female
  Weight: 60 kg

DRUGS (4)
  1. IVACAFTOR [Suspect]
     Active Substance: IVACAFTOR
     Indication: Cystic fibrosis
     Route: 048
     Dates: start: 20210813
  2. PULMOZYME [Concomitant]
     Active Substance: DORNASE ALFA
     Indication: Cystic fibrosis
  3. FLUCLOXACILLIN [Concomitant]
     Active Substance: FLUCLOXACILLIN
     Indication: Cystic fibrosis
  4. VITAMIN D [Concomitant]
     Active Substance: VITAMIN D NOS
     Indication: Cystic fibrosis

REACTIONS (1)
  - Amenorrhoea [Recovering/Resolving]

NARRATIVE: CASE EVENT DATE: 20240108
